FAERS Safety Report 13933529 (Version 1)
Quarter: 2017Q3

REPORT INFORMATION
  Report Type: Spontaneous
  Country: GB (occurrence: GB)
  Receive Date: 20170904
  Receipt Date: 20170904
  Transmission Date: 20171127
  Serious: Yes (Other)
  Sender: FDA-Public Use
  Company Number: PHFR2017GB006924

PATIENT
  Age: 73 Year
  Sex: Male

DRUGS (2)
  1. ELTROMBOPAG [Suspect]
     Active Substance: ELTROMBOPAG
     Dosage: 150 MG, QD
     Route: 065
  2. ELTROMBOPAG [Suspect]
     Active Substance: ELTROMBOPAG
     Indication: APLASTIC ANAEMIA
     Dosage: 100 MG, QD
     Route: 065

REACTIONS (3)
  - Aspartate aminotransferase increased [Unknown]
  - Haemorrhage [Unknown]
  - Viral infection [Unknown]
